FAERS Safety Report 11101254 (Version 2)
Quarter: 2015Q2

REPORT INFORMATION
  Report Type: Spontaneous
  Country: US (occurrence: US)
  Receive Date: 20150508
  Receipt Date: 20150513
  Transmission Date: 20150821
  Serious: Yes (Other)
  Sender: FDA-Public Use
  Company Number: US-TEVA-561269ACC

PATIENT
  Age: 43 Year
  Sex: Female
  Weight: 62.65 kg

DRUGS (2)
  1. ATRALIN 0.05 % GEL [Concomitant]
     Indication: ACNE
  2. PARAGARD T 380A [Suspect]
     Active Substance: COPPER
     Indication: CONTRACEPTION
     Route: 015
     Dates: start: 20150319, end: 20150430

REACTIONS (4)
  - Device expulsion [Recovered/Resolved]
  - Device dislocation [Recovered/Resolved]
  - Adverse event [Unknown]
  - Dyspareunia [Unknown]

NARRATIVE: CASE EVENT DATE: 20150430
